FAERS Safety Report 6036897-1 (Version None)
Quarter: 2009Q1

REPORT INFORMATION
  Report Type: 
  Country: None (occurrence: None)
  Receive Date: 20090114
  Receipt Date: 20090105
  Transmission Date: 20090719
  Serious: Yes (Hospitalization, Other)
  Sender: FDA-Public Use
  Company Number: CA-BAYER-200910461NA

PATIENT
  Age: 80 Year
  Sex: Female

DRUGS (13)
  1. AVELOX [Suspect]
     Indication: DRUG USE FOR UNKNOWN INDICATION
     Dosage: TOTAL DAILY DOSE: 400 MG  UNIT DOSE: 400 MG
     Route: 048
  2. TARO-WARFARIN [Interacting]
     Indication: DRUG USE FOR UNKNOWN INDICATION
     Dosage: TOTAL DAILY DOSE: 3 MG  UNIT DOSE: 3 MG
     Route: 048
  3. ACETAMINOPHEN [Concomitant]
     Route: 048
  4. ADVAIR DISKUS 250/50 [Concomitant]
  5. IPRATROPIUM BROMIDE [Concomitant]
  6. LORAZEPAM [Concomitant]
     Route: 048
  7. MOXIFLOXACIN HCL [Concomitant]
     Route: 042
  8. NICOTINE [Concomitant]
     Route: 062
  9. PHYTONADIONE [Concomitant]
  10. PREDNISONE TAB [Concomitant]
  11. ALBUTEROL [Concomitant]
  12. SPIRONOLACTONE [Concomitant]
  13. TRAZODONE HCL [Concomitant]

REACTIONS (2)
  - DRUG INTERACTION [None]
  - INTERNATIONAL NORMALISED RATIO INCREASED [None]
